FAERS Safety Report 17744193 (Version 2)
Quarter: 2020Q2

REPORT INFORMATION
  Report Type: Spontaneous
  Country: IE (occurrence: IE)
  Receive Date: 20200505
  Receipt Date: 20200520
  Transmission Date: 20200714
  Serious: Yes (Other)
  Sender: FDA-Public Use
  Company Number: IE-ACCORD-180731

PATIENT
  Sex: Female

DRUGS (4)
  1. ANASTROZOLE. [Suspect]
     Active Substance: ANASTROZOLE
     Indication: INTRADUCTAL PROLIFERATIVE BREAST LESION
     Dates: start: 20200403, end: 20200420
  2. CALCICHEW-D3 FORTE [Concomitant]
     Active Substance: CALCIUM\CHOLECALCIFEROL
     Dosage: 1 DAILY
     Route: 048
  3. ANASTROZOLE TEVA [Suspect]
     Active Substance: ANASTROZOLE
     Indication: INTRADUCTAL PROLIFERATIVE BREAST LESION
     Dates: start: 20190902, end: 20200402
  4. BETMIGA [Concomitant]
     Active Substance: MIRABEGRON
     Indication: HYPERTONIC BLADDER
     Route: 048

REACTIONS (17)
  - Arthralgia [Not Recovered/Not Resolved]
  - Alopecia [Not Recovered/Not Resolved]
  - Discomfort [Not Recovered/Not Resolved]
  - Gastrooesophageal reflux disease [Not Recovered/Not Resolved]
  - Pain [Not Recovered/Not Resolved]
  - Asthenia [Not Recovered/Not Resolved]
  - Joint stiffness [Not Recovered/Not Resolved]
  - Carpal tunnel syndrome [Not Recovered/Not Resolved]
  - Vulvovaginal dryness [Not Recovered/Not Resolved]
  - Myalgia [Not Recovered/Not Resolved]
  - Bone pain [Not Recovered/Not Resolved]
  - Dizziness [Not Recovered/Not Resolved]
  - Hot flush [Not Recovered/Not Resolved]
  - Emotional distress [Not Recovered/Not Resolved]
  - Rash [Not Recovered/Not Resolved]
  - Bone loss [Not Recovered/Not Resolved]
  - Arthritis [Not Recovered/Not Resolved]
